FAERS Safety Report 10029889 (Version 1)
Quarter: 2014Q1

REPORT INFORMATION
  Report Type: Spontaneous
  Country: US (occurrence: None)
  Receive Date: 20140306
  Receipt Date: 20140306
  Transmission Date: 20141002
  Serious: Yes (Hospitalization)
  Sender: FDA-Public Use
  Company Number: 163-21880-12122601

PATIENT
  Age: 70 Year
  Sex: Male
  Weight: 85.73 kg

DRUGS (7)
  1. REVLIMID (LENALIDOMIDE) (10 MILLIGRAM, CAPSULES) [Suspect]
     Indication: PLASMA CELL MYELOMA
     Route: 048
     Dates: start: 201109
  2. ACYCLOVIR (ACICLOVIR) [Concomitant]
  3. BACTRIM (BACTRIM) [Concomitant]
  4. DICLOFENAC SODIUM (DICLOFENAC SODIUM) [Concomitant]
  5. KETOPROFEN (KETOPROFEN) [Concomitant]
  6. LORAZEPAM (LORAZEPAM) [Concomitant]
  7. LOVASTATIN (LOVASTATIN) [Concomitant]

REACTIONS (1)
  - Pneumonia pneumococcal [None]
